FAERS Safety Report 25667944 (Version 1)
Quarter: 2025Q3

REPORT INFORMATION
  Report Type: Spontaneous
  Country: GB (occurrence: GB)
  Receive Date: 20250812
  Receipt Date: 20250812
  Transmission Date: 20251020
  Serious: Yes (Other)
  Sender: AMGEN
  Company Number: GB-AMGEN-GBRSP2025156730

PATIENT
  Sex: Male

DRUGS (1)
  1. ARANESP [Suspect]
     Active Substance: DARBEPOETIN ALFA
     Indication: Haemodialysis
     Dosage: 80 MICROGRAM/0.4ML, QWK
     Route: 058

REACTIONS (2)
  - Transplant [Unknown]
  - Off label use [Unknown]
